FAERS Safety Report 16507712 (Version 1)
Quarter: 2019Q3

REPORT INFORMATION
  Report Type: Spontaneous
  Country: FR (occurrence: FR)
  Receive Date: 20190701
  Receipt Date: 20190701
  Transmission Date: 20191004
  Serious: Yes (Hospitalization)
  Sender: FDA-Public Use
  Company Number: FR-MYLANLABS-2019M1059911

PATIENT
  Age: 66 Year
  Sex: Male
  Weight: 72 kg

DRUGS (13)
  1. VENTOLINE                          /00139502/ [Concomitant]
     Active Substance: ALBUTEROL SULFATE
  2. ATORVASTATIN [Concomitant]
     Active Substance: ATORVASTATIN
  3. ALLOPURINOL. [Concomitant]
     Active Substance: ALLOPURINOL
  4. SPECIAFOLDINE [Concomitant]
     Active Substance: FOLIC ACID
  5. DUPHALAC [Concomitant]
     Active Substance: LACTULOSE
  6. PANTOPRAZOLE [Concomitant]
     Active Substance: PANTOPRAZOLE
  7. VANCOMYCINE MYLAN 1 G, POUDRE POUR SOLUTION POUR PERFUSION [Suspect]
     Active Substance: VANCOMYCIN
     Indication: ENTEROBACTER SEPSIS
     Dosage: 1 GRAM, QD
     Route: 041
     Dates: start: 20181016, end: 20181017
  8. ASPIRINE PROTECT [Concomitant]
     Active Substance: ASPIRIN
  9. NATISPRAY [Concomitant]
     Active Substance: NITROGLYCERIN
  10. TEICOPLANIN MYLAN [Suspect]
     Active Substance: TEICOPLANIN
     Indication: ENTEROBACTER SEPSIS
     Dosage: 800 MILLIGRAM, QD
     Route: 041
     Dates: start: 20181008, end: 20181015
  11. VALSARTAN. [Concomitant]
     Active Substance: VALSARTAN
  12. MONTELUKAST SODIUM. [Concomitant]
     Active Substance: MONTELUKAST SODIUM
  13. BISOCE [Concomitant]
     Active Substance: BISOPROLOL

REACTIONS (6)
  - Purpura [Recovered/Resolved]
  - Blister [Recovered/Resolved]
  - Pruritus generalised [Recovered/Resolved]
  - Hypercreatininaemia [Recovered/Resolved]
  - Eosinophilia [Recovered/Resolved]
  - Rash maculo-papular [Recovered/Resolved]

NARRATIVE: CASE EVENT DATE: 201810
